FAERS Safety Report 7988384-9 (Version None)
Quarter: 2011Q4

REPORT INFORMATION
  Report Type: 
  Country: None (occurrence: None)
  Receive Date: 20111216
  Receipt Date: 20111207
  Transmission Date: 20120403
  Serious: Yes (Other)
  Sender: FDA-Public Use
  Company Number: FR-ASTRAZENECA-2011SE59239

PATIENT
  Age: 1178 Month
  Sex: Female
  Weight: 50 kg

DRUGS (8)
  1. XALATAN [Concomitant]
  2. SIMVASTATIN [Concomitant]
     Indication: HYPERCHOLESTEROLAEMIA
  3. POLYETHYLENE GLYCOL [Concomitant]
  4. LEVOTHYROXINE SODIUM [Concomitant]
     Indication: HYPOTHYROIDISM
  5. ASPIRIN [Concomitant]
     Indication: THROMBOSIS PROPHYLAXIS
     Dates: start: 20090101
  6. ARIMIDEX [Suspect]
     Indication: BREAST CANCER
     Route: 048
     Dates: start: 20090201, end: 20110926
  7. TRUSOPT [Concomitant]
  8. ACETAMINOPHEN [Concomitant]
     Indication: PAIN

REACTIONS (7)
  - GENERAL PHYSICAL HEALTH DETERIORATION [None]
  - DISEASE PROGRESSION [None]
  - ARTHRALGIA [None]
  - CARBOHYDRATE ANTIGEN 15-3 INCREASED [None]
  - BACK PAIN [None]
  - CARCINOEMBRYONIC ANTIGEN INCREASED [None]
  - BLOOD ALKALINE PHOSPHATASE INCREASED [None]
